FAERS Safety Report 22323074 (Version 1)
Quarter: 2023Q2

REPORT INFORMATION
  Report Type: Spontaneous
  Country: US (occurrence: None)
  Receive Date: 20230512
  Receipt Date: 20230512
  Transmission Date: 20230721
  Serious: Yes (Disabling)
  Sender: FDA-Public Use
  Company Number: None

PATIENT
  Age: 3 Year
  Sex: Female
  Weight: 13.5 kg

DRUGS (2)
  1. ERYTHROMYCIN [Suspect]
     Active Substance: ERYTHROMYCIN
     Indication: Eye injury
     Dosage: OTHER QUANTITY : 1 4 TIMES A DAY;?FREQUENCY : EVERY 4 HOURS;?
     Route: 047
     Dates: start: 20220510, end: 20220515
  2. CLARITIN [Concomitant]
     Active Substance: LORATADINE

REACTIONS (3)
  - Recalled product administered [None]
  - Blindness unilateral [None]
  - Strabismus [None]

NARRATIVE: CASE EVENT DATE: 20220510
